FAERS Safety Report 10065290 (Version 2)
Quarter: 2014Q2

REPORT INFORMATION
  Report Type: Spontaneous
  Country: US (occurrence: US)
  Receive Date: 20140408
  Receipt Date: 20140425
  Transmission Date: 20141212
  Serious: Yes (Disabling, Other)
  Sender: FDA-Public Use
  Company Number: US-PFIZER INC-2014096244

PATIENT
  Age: 45 Year
  Sex: Female
  Weight: 72.56 kg

DRUGS (5)
  1. DEPO-MEDROL [Suspect]
     Indication: ANALGESIC THERAPY
     Dosage: 3 DF
     Route: 008
  2. DEPO-MEDROL [Suspect]
     Indication: BACK PAIN
     Dosage: 80 MG
     Route: 008
     Dates: start: 20050502, end: 20050816
  3. DEPO-MEDROL [Suspect]
     Indication: PAIN IN EXTREMITY
  4. NEURONTIN [Concomitant]
     Dosage: AS NEEDED
  5. LORTAB [Concomitant]
     Dosage: 10/500 AS NEEDED

REACTIONS (7)
  - Drug administered at inappropriate site [Unknown]
  - Oesophageal disorder [Unknown]
  - Spinal cord disorder [Unknown]
  - Pain [Unknown]
  - Arachnoiditis [Unknown]
  - Drug ineffective [Unknown]
  - Headache [Recovered/Resolved]
